FAERS Safety Report 10441351 (Version 1)
Quarter: 2014Q3

REPORT INFORMATION
  Report Type: Spontaneous
  Country: GB (occurrence: GB)
  Receive Date: 20140909
  Receipt Date: 20140909
  Transmission Date: 20150326
  Serious: Yes (Other)
  Sender: FDA-Public Use
  Company Number: GB-WATSON-2014-19379

PATIENT
  Age: 58 Year
  Sex: Female

DRUGS (1)
  1. VANCOMYCIN [Suspect]
     Active Substance: VANCOMYCIN
     Indication: PRODUCT USED FOR UNKNOWN INDICATION
     Dosage: 1 G, UNKNOWN
     Route: 042

REACTIONS (4)
  - Blood creatinine increased [Unknown]
  - Renal function test abnormal [Unknown]
  - Drug prescribing error [Unknown]
  - Urine output decreased [Unknown]

NARRATIVE: CASE EVENT DATE: 20131222
